FAERS Safety Report 8530778-7 (Version None)
Quarter: 2012Q3

REPORT INFORMATION
  Report Type: 
  Country: None (occurrence: None)
  Receive Date: 20120723
  Receipt Date: 20120719
  Transmission Date: 20120928
  Serious: Yes (Other)
  Sender: FDA-Public Use
  Company Number: JP-ROCHE-1073416

PATIENT
  Sex: Male
  Weight: 47 kg

DRUGS (3)
  1. AVASTIN [Suspect]
     Indication: RECTAL CANCER METASTATIC
     Route: 041
     Dates: start: 20111110
  2. MAGLAX [Concomitant]
     Indication: CONSTIPATION
     Route: 048
     Dates: start: 20111102
  3. XELODA [Suspect]
     Indication: RECTAL CANCER METASTATIC
     Dosage: IT IS TWO ADMINISTERING WEEKLY HOLIDAY MEDICINE FOR TWO WEEKS.
     Route: 048
     Dates: start: 20111110

REACTIONS (2)
  - HYPERTENSION [None]
  - INTERSTITIAL LUNG DISEASE [None]
